FAERS Safety Report 17051482 (Version 3)
Quarter: 2019Q4

REPORT INFORMATION
  Report Type: Spontaneous
  Country: US (occurrence: US)
  Receive Date: 20191120
  Receipt Date: 20191218
  Transmission Date: 20200122
  Serious: Yes (Other)
  Sender: FDA-Public Use
  Company Number: US-ROCHE-2467138

PATIENT
  Sex: Male
  Weight: 68.1 kg

DRUGS (2)
  1. LUCENTIS [Suspect]
     Active Substance: RANIBIZUMAB
     Indication: PRODUCT USED FOR UNKNOWN INDICATION
     Route: 050
     Dates: start: 20180101
  2. METFORMIN [Concomitant]
     Active Substance: METFORMIN HYDROCHLORIDE
     Indication: DIABETES MELLITUS
     Route: 065

REACTIONS (8)
  - Visual impairment [Unknown]
  - Swelling [Unknown]
  - Haemorrhage [Unknown]
  - Suspected transmission of an infectious agent via product [Unknown]
  - Product quality issue [Unknown]
  - Eye infection [Unknown]
  - Blindness transient [Recovering/Resolving]
  - Erythema [Unknown]
